FAERS Safety Report 16331230 (Version 1)
Quarter: 2019Q2

REPORT INFORMATION
  Report Type: Spontaneous
  Country: US (occurrence: US)
  Receive Date: 20190520
  Receipt Date: 20190520
  Transmission Date: 20190711
  Serious: No
  Sender: FDA-Public Use
  Company Number: US-ACADIA PHARMACEUTICALS INC.-ACA-2019-012146

PATIENT
  Age: 69 Year
  Sex: Female

DRUGS (18)
  1. PALIPERIDONE. [Concomitant]
     Active Substance: PALIPERIDONE
     Indication: SCREAMING
  2. HALOPERIDOL DECANOATE. [Concomitant]
     Active Substance: HALOPERIDOL DECANOATE
     Indication: HALLUCINATION, AUDITORY
  3. NUPLAZID [Suspect]
     Active Substance: PIMAVANSERIN TARTRATE
     Indication: SCREAMING
  4. HALOPERIDOL DECANOATE. [Concomitant]
     Active Substance: HALOPERIDOL DECANOATE
     Indication: SCREAMING
  5. HALOPERIDOL DECANOATE. [Concomitant]
     Active Substance: HALOPERIDOL DECANOATE
     Indication: ABNORMAL BEHAVIOUR
  6. PALIPERIDONE. [Concomitant]
     Active Substance: PALIPERIDONE
     Indication: SCHIZOPHRENIA
     Dosage: 234 MG/MONTH
     Route: 048
  7. NUPLAZID [Suspect]
     Active Substance: PIMAVANSERIN TARTRATE
     Indication: HALLUCINATION, AUDITORY
  8. OLANZAPINE. [Concomitant]
     Active Substance: OLANZAPINE
     Indication: HALLUCINATION, AUDITORY
  9. PALIPERIDONE. [Concomitant]
     Active Substance: PALIPERIDONE
     Indication: HALLUCINATION, AUDITORY
  10. PALIPERIDONE. [Concomitant]
     Active Substance: PALIPERIDONE
     Indication: ABNORMAL BEHAVIOUR
  11. NUPLAZID [Suspect]
     Active Substance: PIMAVANSERIN TARTRATE
     Indication: SCHIZOPHRENIA
     Dosage: 34 MG, QD
  12. NUPLAZID [Suspect]
     Active Substance: PIMAVANSERIN TARTRATE
     Indication: ABNORMAL BEHAVIOUR
  13. HALOPERIDOL DECANOATE. [Concomitant]
     Active Substance: HALOPERIDOL DECANOATE
     Indication: SCHIZOPHRENIA
     Dosage: 75 MG, MONTH
     Route: 048
  14. NUPLAZID [Suspect]
     Active Substance: PIMAVANSERIN TARTRATE
     Indication: SCREAMING
  15. OLANZAPINE. [Concomitant]
     Active Substance: OLANZAPINE
     Indication: SCHIZOPHRENIA
     Dosage: 25 MG, QD
  16. OLANZAPINE. [Concomitant]
     Active Substance: OLANZAPINE
     Indication: SCREAMING
  17. NUPLAZID [Suspect]
     Active Substance: PIMAVANSERIN TARTRATE
     Indication: ABNORMAL BEHAVIOUR
  18. OLANZAPINE. [Concomitant]
     Active Substance: OLANZAPINE
     Indication: ABNORMAL BEHAVIOUR

REACTIONS (1)
  - Therapeutic response unexpected [Unknown]
